FAERS Safety Report 8604644 (Version 3)
Quarter: 2012Q4

REPORT INFORMATION
  Report Type: Report from Study
  Country: JP (occurrence: JP)
  Receive Date: 20120608
  Receipt Date: 20121001
  Transmission Date: 20130627
  Serious: Yes (Death, Life-Threatening, Hospitalization, Other)
  Sender: FDA-Public Use
  Company Number: JP-GENZYME-THYM-1003090

PATIENT
  Age: 20 Year
  Sex: Female
  Weight: 48 kg

DRUGS (23)
  1. THYMOGLOBULIN [Suspect]
     Indication: BONE MARROW CONDITIONING REGIMEN
     Dosage: 60 mg, qd
     Route: 042
     Dates: start: 20110918, end: 20110919
  2. FLUDARA [Suspect]
     Indication: BONE MARROW CONDITIONING REGIMEN
     Dosage: 20 mg, qd
     Route: 065
     Dates: start: 20110913, end: 20110917
  3. POLYMYXIN B SULFATE [Concomitant]
     Indication: PROPHYLAXIS
     Dosage: UNK
     Route: 065
     Dates: start: 20110527, end: 20110929
  4. ANTIBIOTICS-RESISTANT LACTIC ACID BACTERIAE [Concomitant]
     Indication: PROPHYLAXIS
     Dosage: UNK
     Route: 065
     Dates: start: 20110527, end: 20110919
  5. REBAMIPIDE [Concomitant]
     Indication: GASTRITIS PROPHYLAXIS
     Dosage: UNK
     Route: 065
     Dates: start: 20110527, end: 20110929
  6. ALLOPURINOL [Concomitant]
     Indication: PROPHYLAXIS
     Dosage: UNK
     Route: 065
     Dates: start: 20110911, end: 20110920
  7. SULFAMETHOPRIM [Concomitant]
     Indication: ANTIFUNGAL PROPHYLAXIS
     Dosage: UNK
     Route: 065
     Dates: start: 20110911, end: 20110920
  8. ACICLOVIR [Concomitant]
     Indication: ANTIVIRAL PROPHYLAXIS
     Dosage: UNK
     Route: 065
     Dates: start: 20110913, end: 20110929
  9. DALTEPARIN SODIUM [Concomitant]
     Indication: PROPHYLAXIS
     Dosage: UNK
     Route: 065
     Dates: start: 20110912, end: 20110926
  10. APREPITANT [Concomitant]
     Indication: VOMITING
     Dosage: UNK
     Route: 065
     Dates: start: 20110917, end: 20110920
  11. ACETAMINOPHEN [Concomitant]
     Indication: PREMEDICATION
     Dosage: UNK
     Route: 065
     Dates: start: 20110918, end: 20110919
  12. ACETAMINOPHEN [Concomitant]
     Dosage: UNK
     Route: 065
     Dates: start: 20110527, end: 20111012
  13. DEXCHLORPHENIRAMINE MALEATE [Concomitant]
     Indication: PREMEDICATION
     Dosage: UNK
     Route: 065
     Dates: start: 20110918, end: 20110919
  14. METHYLPREDNISOLONE SODIUM SUCCINATE [Concomitant]
     Indication: PREMEDICATION
     Dosage: UNK
     Route: 065
     Dates: start: 20110918, end: 20110919
  15. LANSOPRAZOLE [Concomitant]
     Indication: GASTRITIS PROPHYLAXIS
     Dosage: UNK
     Route: 065
     Dates: start: 20110914, end: 20110925
  16. LANSOPRAZOLE [Concomitant]
     Dosage: bid
     Route: 065
     Dates: start: 20110926, end: 20111020
  17. ITRACONAZOLE [Concomitant]
     Indication: ANTIFUNGAL PROPHYLAXIS
     Dosage: 20 ml, UNK
     Route: 065
     Dates: start: 20110913, end: 20110925
  18. ITRACONAZOLE [Concomitant]
     Dosage: UNK
     Route: 065
     Dates: start: 20110926, end: 20110929
  19. AZASETRON HYDROCHLORIDE [Concomitant]
     Indication: PROPHYLAXIS OF NAUSEA AND VOMITING
     Dosage: UNK
     Route: 065
     Dates: start: 20110918, end: 20110919
  20. CLOSTRIDIUM BUTYRICUM [Concomitant]
     Indication: PROPHYLAXIS
     Dosage: UNK
     Route: 065
     Dates: start: 20110919, end: 20110929
  21. CICLOSPORIN [Concomitant]
     Indication: PROPHYLAXIS AGAINST GRAFT VERSUS HOST DISEASE
     Dosage: UNK
     Route: 065
     Dates: start: 20110920, end: 20111016
  22. MELPHALAN [Concomitant]
     Indication: BONE MARROW CONDITIONING REGIMEN
     Dosage: UNK
     Route: 065
     Dates: start: 20110916, end: 20110917
  23. METHOTREXATE [Concomitant]
     Indication: PROPHYLAXIS AGAINST GRAFT VERSUS HOST DISEASE
     Dosage: UNK
     Route: 065
     Dates: start: 20110922, end: 20110927

REACTIONS (15)
  - Engraft failure [Fatal]
  - Shock haemorrhagic [Fatal]
  - Venoocclusive disease [Fatal]
  - Disseminated intravascular coagulation [Fatal]
  - Renal failure acute [Fatal]
  - Oedema [Fatal]
  - Stomatitis [Fatal]
  - Febrile neutropenia [Fatal]
  - Pyrexia [Fatal]
  - Endotoxaemia [Fatal]
  - Neutropenia [Fatal]
  - Hypoalbuminaemia [Fatal]
  - Antithrombin III decreased [Fatal]
  - Hypokalaemia [Recovered/Resolved]
  - Supraventricular tachycardia [Recovered/Resolved]
